FAERS Safety Report 9808979 (Version 2)
Quarter: 2014Q1

REPORT INFORMATION
  Report Type: Report from Study
  Country: US (occurrence: US)
  Receive Date: 20140110
  Receipt Date: 20140110
  Transmission Date: 20141002
  Serious: Yes (Hospitalization, Other)
  Sender: FDA-Public Use
  Company Number: PHEH2013US015709

PATIENT
  Sex: Female

DRUGS (1)
  1. GLEEVEC [Suspect]
     Indication: CHRONIC MYELOID LEUKAEMIA
     Dosage: 400 MG, QD
     Route: 048
     Dates: start: 2007

REACTIONS (8)
  - Nephrolithiasis [Unknown]
  - Renal pain [Unknown]
  - Cholelithiasis [Unknown]
  - Urinary tract infection [Unknown]
  - Local swelling [Not Recovered/Not Resolved]
  - Fluid retention [Unknown]
  - Malaise [Unknown]
  - Oedema peripheral [Not Recovered/Not Resolved]
